FAERS Safety Report 25523515 (Version 1)
Quarter: 2025Q3

REPORT INFORMATION
  Report Type: Spontaneous
  Country: US (occurrence: None)
  Receive Date: 20250707
  Receipt Date: 20250707
  Transmission Date: 20251020
  Serious: No
  Sender: ENCUBE ETHICALS
  Company Number: US-Encube-001999

PATIENT
  Age: 76 Year
  Sex: Male

DRUGS (2)
  1. CICLOPIROX [Suspect]
     Active Substance: CICLOPIROX
     Indication: Onychomycosis
     Dates: start: 202506, end: 202506
  2. CICLOPIROX [Suspect]
     Active Substance: CICLOPIROX
     Indication: Onychomycosis

REACTIONS (2)
  - Nail disorder [Unknown]
  - Product quality issue [Unknown]

NARRATIVE: CASE EVENT DATE: 20250601
